FAERS Safety Report 9299044 (Version 1)
Quarter: 2013Q2

REPORT INFORMATION
  Report Type: Spontaneous
  Country: DE (occurrence: CA)
  Receive Date: 20130520
  Receipt Date: 20130520
  Transmission Date: 20140414
  Serious: Yes (Hospitalization)
  Sender: FDA-Public Use
  Company Number: CA-FRI-1000045213

PATIENT
  Age: 74 Year
  Sex: Female

DRUGS (5)
  1. ROFLUMILAST [Suspect]
     Indication: BRONCHITIS CHRONIC
     Dosage: 500 MCG
     Route: 048
     Dates: start: 20111014
  2. ROFLUMILAST [Suspect]
     Dosage: 250 MCG
     Route: 048
     Dates: start: 20130120
  3. ROFLUMILAST [Suspect]
     Indication: BRONCHITIS CHRONIC
     Dosage: 500 MCG
     Route: 048
     Dates: end: 201303
  4. SPIRIVA [Concomitant]
  5. ADVAIR [Concomitant]

REACTIONS (5)
  - Dehydration [Recovered/Resolved]
  - Nausea [Recovered/Resolved]
  - Decreased appetite [Recovered/Resolved]
  - Abdominal discomfort [Recovered/Resolved]
  - Medication error [Unknown]
